FAERS Safety Report 7730014-5 (Version None)
Quarter: 2011Q3

REPORT INFORMATION
  Report Type: 
  Country: None (occurrence: None)
  Receive Date: 20110901
  Receipt Date: 20110901
  Transmission Date: 20111222
  Serious: Yes (Death, Other)
  Sender: FDA-Public Use
  Company Number: None

PATIENT
  Age: 68 Year
  Sex: Male
  Weight: 136.0791 kg

DRUGS (1)
  1. GABAPENTIN [Suspect]
     Indication: SURGERY
     Dosage: 1   3-TIMES DAY MOUTH  (2 PILLS)
     Route: 048
     Dates: start: 20110715

REACTIONS (5)
  - ANXIETY [None]
  - IRRITABILITY [None]
  - DYSKINESIA [None]
  - INSOMNIA [None]
  - PARAESTHESIA [None]
